FAERS Safety Report 6315421-X (Version None)
Quarter: 2009Q3

REPORT INFORMATION
  Report Type: 
  Country: None (occurrence: None)
  Receive Date: 20090819
  Receipt Date: 20090811
  Transmission Date: 20100115
  Serious: Yes (Hospitalization)
  Sender: FDA-Public Use
  Company Number: US-WYE-H10535509

PATIENT
  Age: 28 Year
  Sex: Female

DRUGS (7)
  1. VENLAFAXINE HYDROCHLORIDE [Suspect]
     Dosage: OVERDOSE AMOUNT OF 15 GRAMS
  2. PROPOFOL [Concomitant]
  3. NORDAZEPAM [Concomitant]
  4. CAFFEINE CITRATE [Concomitant]
  5. GUAIFENESIN [Concomitant]
  6. PHENOBARBITAL [Concomitant]
  7. NICOTINE [Concomitant]

REACTIONS (11)
  - ACUTE RESPIRATORY DISTRESS SYNDROME [None]
  - ACUTE RESPIRATORY FAILURE [None]
  - COMA [None]
  - CONVULSION [None]
  - HYPOTENSION [None]
  - LOW CARDIAC OUTPUT SYNDROME [None]
  - MYOCARDIAL DEPRESSION [None]
  - OVERDOSE [None]
  - RENAL FAILURE [None]
  - RHABDOMYOLYSIS [None]
  - TACHYCARDIA [None]
